FAERS Safety Report 7619049-0 (Version None)
Quarter: 2011Q3

REPORT INFORMATION
  Report Type: 
  Country: None (occurrence: None)
  Receive Date: 20110718
  Receipt Date: 20110708
  Transmission Date: 20111222
  Serious: Yes (Hospitalization)
  Sender: FDA-Public Use
  Company Number: GB-ASTRAZENECA-2011SE40839

PATIENT
  Age: 45 Year
  Sex: Female
  Weight: 39 kg

DRUGS (10)
  1. CREON [Concomitant]
     Indication: CYSTIC FIBROSIS
     Dosage: 10000 AS REQUIRED
  2. COLISTIN SULFATE [Concomitant]
     Indication: CYSTIC FIBROSIS
     Dosage: 2 MU NEBULISER TWO TIMES A DAY
  3. SYMBICORT [Concomitant]
     Indication: CYSTIC FIBROSIS
     Dosage: 200/6, TWO TIMES DAILY
  4. MEGESTROL ACETATE [Concomitant]
     Indication: CYSTIC FIBROSIS
  5. MEROPENEM [Suspect]
     Indication: INFECTIVE PULMONARY EXACERBATION OF CYSTIC FIBROSIS
     Route: 042
     Dates: start: 20110525, end: 20110525
  6. IPRATROPIUM BROMIDE [Concomitant]
     Indication: CYSTIC FIBROSIS
  7. ACETAMINOPHEN AND CODEINE PHOSPHATE [Concomitant]
     Indication: CYSTIC FIBROSIS
  8. CARBOCISTEINE [Concomitant]
     Indication: CYSTIC FIBROSIS
  9. ADCAL-D3 [Concomitant]
     Indication: CYSTIC FIBROSIS
     Dosage: IN THE MORNING
  10. PULMOZYME [Concomitant]
     Indication: CYSTIC FIBROSIS

REACTIONS (4)
  - DYSPNOEA [None]
  - BODY TEMPERATURE INCREASED [None]
  - FLUSHING [None]
  - PARAESTHESIA [None]
